FAERS Safety Report 13550400 (Version 2)
Quarter: 2017Q2

REPORT INFORMATION
  Report Type: Spontaneous
  Country: TR (occurrence: TR)
  Receive Date: 20170516
  Receipt Date: 20170522
  Transmission Date: 20170830
  Serious: Yes (Hospitalization)
  Sender: FDA-Public Use
  Company Number: PHHY2017TR069670

PATIENT
  Age: 72 Year
  Sex: Male

DRUGS (2)
  1. ZOMETA [Suspect]
     Active Substance: ZOLEDRONIC ACID
     Indication: PROSTATE CANCER
     Dosage: 4 MG, UNK
     Route: 042
  2. ZOMETA [Suspect]
     Active Substance: ZOLEDRONIC ACID
     Dosage: UNK
     Route: 042

REACTIONS (6)
  - Exposed bone in jaw [Recovering/Resolving]
  - Bone erosion [Recovering/Resolving]
  - Osteonecrosis of jaw [Recovered/Resolved with Sequelae]
  - Pain in jaw [Recovered/Resolved]
  - Jaw fracture [Recovering/Resolving]
  - Bone disorder [Recovered/Resolved with Sequelae]
